FAERS Safety Report 6980588-7 (Version None)
Quarter: 2010Q3

REPORT INFORMATION
  Report Type: 
  Country: None (occurrence: None)
  Receive Date: 20100914
  Receipt Date: 20100902
  Transmission Date: 20110219
  Serious: No
  Sender: FDA-Public Use
  Company Number: US-B.I. PHARMACEUTICALS,INC./RIDGEFIELD-2010-BP-10154BP

PATIENT
  Sex: Female

DRUGS (3)
  1. TWYNSTA [Suspect]
     Indication: HYPERTENSION
     Route: 048
     Dates: start: 20100601
  2. TWYNSTA [Suspect]
     Route: 048
  3. TWYNSTA [Suspect]
     Route: 048

REACTIONS (5)
  - HEADACHE [None]
  - MALAISE [None]
  - NASAL CONGESTION [None]
  - NAUSEA [None]
  - THINKING ABNORMAL [None]
